FAERS Safety Report 23045904 (Version 1)
Quarter: 2023Q4

REPORT INFORMATION
  Report Type: Spontaneous
  Country: US (occurrence: US)
  Receive Date: 20231009
  Receipt Date: 20231009
  Transmission Date: 20240110
  Serious: Yes (Hospitalization)
  Sender: FDA-Public Use
  Company Number: US-ORPHANEU-2023007064

PATIENT

DRUGS (2)
  1. CYSTADANE [Suspect]
     Active Substance: BETAINE
     Indication: Vitamin B complex deficiency
     Dosage: 5 DOSAGE FORM, TID
     Route: 048
     Dates: start: 20161215, end: 202309
  2. CYSTADANE [Suspect]
     Active Substance: BETAINE
     Indication: Off label use
     Dosage: 5 DOSAGE FORM, TID
     Route: 048
     Dates: start: 202309

REACTIONS (2)
  - Mental disorder [Unknown]
  - Off label use [Recovered/Resolved]

NARRATIVE: CASE EVENT DATE: 20161215
